FAERS Safety Report 8617426-2 (Version None)
Quarter: 2012Q3

REPORT INFORMATION
  Report Type: 
  Country: None (occurrence: None)
  Receive Date: 20120823
  Receipt Date: 20120820
  Transmission Date: 20120928
  Serious: Yes (Death, Hospitalization, Other)
  Sender: FDA-Public Use
  Company Number: US-009507513-1207USA007714

PATIENT

DRUGS (2)
  1. PROMACTA [Concomitant]
  2. VICTRELIS [Suspect]
     Indication: HEPATITIS C
     Dosage: 800 MG, TID
     Route: 048
     Dates: start: 20120521

REACTIONS (7)
  - WAIST CIRCUMFERENCE INCREASED [None]
  - PERITONITIS BACTERIAL [None]
  - SEPSIS [None]
  - ABDOMINAL DISTENSION [None]
  - WEIGHT INCREASED [None]
  - MULTI-ORGAN FAILURE [None]
  - DYSPNOEA [None]
